FAERS Safety Report 7572385-9 (Version None)
Quarter: 2011Q2

REPORT INFORMATION
  Report Type: 
  Country: None (occurrence: None)
  Receive Date: 20110624
  Receipt Date: 20110622
  Transmission Date: 20111010
  Serious: Yes (Death)
  Sender: FDA-Public Use
  Company Number: PHHY2010DE92269

PATIENT
  Sex: Male
  Weight: 124 kg

DRUGS (12)
  1. ACTOS [Concomitant]
     Dosage: 45 MG,QD
  2. BERLTHYROX [Concomitant]
     Dosage: 100 MG, QD
  3. LEVOTHYROXINE SODIUM [Concomitant]
     Indication: THYROIDECTOMY
     Dosage: 100 UG, UNK
     Route: 048
     Dates: start: 19920101
  4. FOSINOPRIL ACT [Concomitant]
     Dosage: 12.5 MG, QD
  5. SANDOSTATIN LAR [Suspect]
     Indication: NEUROENDOCRINE TUMOUR
     Dosage: 30 MG, UNK
     Route: 030
     Dates: start: 20100827, end: 20100914
  6. VEROSPIRON [Concomitant]
     Dosage: 25 MG, QD
  7. XIPAMIDE [Concomitant]
     Dosage: 40 MG, QD
  8. PANTOPRAZOLE [Concomitant]
     Indication: GASTRITIS EROSIVE
  9. ASPIRIN [Concomitant]
     Indication: CORONARY ARTERY DISEASE
  10. REMID [Concomitant]
     Dosage: 300 MG, QD
  11. GLUCOBON BIOMO [Concomitant]
     Dosage: 1000 MG, TWICE A DAY
  12. MOXONIDINE [Concomitant]
     Dosage: 0.4 MG, QD

REACTIONS (4)
  - DIARRHOEA [None]
  - VENTRICULAR FIBRILLATION [None]
  - PULMONARY OEDEMA [None]
  - CARDIOGENIC SHOCK [None]
